FAERS Safety Report 10663234 (Version 1)
Quarter: 2014Q4

REPORT INFORMATION
  Report Type: Spontaneous
  Country: US (occurrence: US)
  Receive Date: 20141218
  Receipt Date: 20141218
  Transmission Date: 20150529
  Serious: No
  Sender: FDA-Public Use
  Company Number: US-GLAXOSMITHKLINE-A1089450A

PATIENT

DRUGS (10)
  1. TAFINLAR [Suspect]
     Active Substance: DABRAFENIB MESYLATE
     Indication: MALIGNANT MELANOMA
     Dosage: 75 MG CAPSULES
     Route: 048
     Dates: start: 20140414
  2. COMPAZINE [Concomitant]
     Active Substance: PROCHLORPERAZINE MALEATE
  3. LASIX [Concomitant]
     Active Substance: FUROSEMIDE
  4. OXYCODONE [Concomitant]
     Active Substance: OXYCODONE
  5. CIPRO [Concomitant]
     Active Substance: CIPROFLOXACIN HYDROCHLORIDE
  6. MEKINIST [Suspect]
     Active Substance: TRAMETINIB DIMETHYL SULFOXIDE
     Indication: MALIGNANT MELANOMA
     Dosage: 2 MG TABLETS
     Route: 048
     Dates: start: 20140414
  7. AMOXICILLIN. [Concomitant]
     Active Substance: AMOXICILLIN
  8. LORAZEPAM. [Concomitant]
     Active Substance: LORAZEPAM
  9. INTRON A [Concomitant]
     Active Substance: INTERFERON ALFA-2B
  10. POTASSIUM [Concomitant]
     Active Substance: POTASSIUM

REACTIONS (7)
  - Feeling cold [Unknown]
  - Local swelling [Unknown]
  - Rash [Unknown]
  - Arthropod bite [Unknown]
  - Chills [Unknown]
  - Arthralgia [Unknown]
  - Feeling hot [Unknown]
